FAERS Safety Report 9837448 (Version 2)
Quarter: 2014Q1

REPORT INFORMATION
  Report Type: Report from Study
  Country: US (occurrence: US)
  Receive Date: 20140123
  Receipt Date: 20140204
  Transmission Date: 20141002
  Serious: Yes (Hospitalization, Other)
  Sender: FDA-Public Use
  Company Number: US-MYLANLABS-2013S1002852

PATIENT
  Age: 20 Year
  Sex: Male
  Weight: 98.43 kg

DRUGS (13)
  1. CLOZAPINE TABLETS [Suspect]
     Indication: MOOD DISORDER DUE TO A GENERAL MEDICAL CONDITION
     Dates: start: 20120828
  2. CLOZAPINE TABLETS [Suspect]
     Indication: INTERMITTENT EXPLOSIVE DISORDER
     Dates: start: 20120828
  3. CLOZAPINE TABLETS [Suspect]
     Indication: MOOD DISORDER DUE TO A GENERAL MEDICAL CONDITION
  4. CLOZAPINE TABLETS [Suspect]
     Indication: INTERMITTENT EXPLOSIVE DISORDER
  5. CLOZAPINE TABLETS [Suspect]
     Indication: MOOD DISORDER DUE TO A GENERAL MEDICAL CONDITION
     Dates: end: 20131212
  6. CLOZAPINE TABLETS [Suspect]
     Indication: INTERMITTENT EXPLOSIVE DISORDER
     Dates: end: 20131212
  7. CLOZAPINE TABLETS [Suspect]
     Indication: MOOD DISORDER DUE TO A GENERAL MEDICAL CONDITION
     Route: 048
     Dates: start: 20120828, end: 20131212
  8. CLOZAPINE TABLETS [Suspect]
     Indication: INTERMITTENT EXPLOSIVE DISORDER
     Route: 048
     Dates: start: 20120828, end: 20131212
  9. DEPAKOTE [Suspect]
     Dates: end: 20131212
  10. DEPAKOTE [Suspect]
     Dates: start: 20131213
  11. AUGMENTIN [Suspect]
     Dates: start: 20131115
  12. AUGMENTIN [Suspect]
  13. ZITHROMAX [Suspect]

REACTIONS (3)
  - Bronchopneumonia [Recovered/Resolved]
  - Granulocytopenia [Not Recovered/Not Resolved]
  - Hypoxia [Recovered/Resolved]
